FAERS Safety Report 16928765 (Version 2)
Quarter: 2019Q4

REPORT INFORMATION
  Report Type: Spontaneous
  Country: GB (occurrence: GB)
  Receive Date: 20191017
  Receipt Date: 20191209
  Transmission Date: 20200122
  Serious: Yes (Other)
  Sender: FDA-Public Use
  Company Number: GB-AUROBINDO-AUR-APL-2019-067395

PATIENT
  Age: 39 Year
  Sex: Female

DRUGS (1)
  1. GABAPENTIN CAPSULES, HARD 100MG [Suspect]
     Active Substance: GABAPENTIN
     Indication: NEURALGIA
     Dosage: 100 MILLIGRAM, ONCE A DAY (STRENGTH: 100 MG, 3 TIMES A DAY)
     Route: 048
     Dates: start: 20180821, end: 20180823

REACTIONS (4)
  - Off label use [Unknown]
  - Deafness [Unknown]
  - Feeling abnormal [Recovering/Resolving]
  - Memory impairment [Recovering/Resolving]

NARRATIVE: CASE EVENT DATE: 20180821
